FAERS Safety Report 7461482-4 (Version None)
Quarter: 2011Q2

REPORT INFORMATION
  Report Type: 
  Country: None (occurrence: None)
  Receive Date: 20110506
  Receipt Date: 20110503
  Transmission Date: 20111010
  Serious: Yes (Death, Other)
  Sender: FDA-Public Use
  Company Number: US-PFIZER INC-2010072318

PATIENT
  Sex: Male

DRUGS (2)
  1. CHANTIX [Suspect]
     Dosage: UNK
     Dates: start: 20080101
  2. CHANTIX [Suspect]
     Dosage: UNK, STARTER PACK
     Dates: start: 20070801, end: 20070901

REACTIONS (4)
  - COMPLETED SUICIDE [None]
  - DEPRESSION [None]
  - NIGHTMARE [None]
  - HALLUCINATION [None]
